FAERS Safety Report 21823106 (Version 1)
Quarter: 2023Q1

REPORT INFORMATION
  Report Type: Report from Study
  Country: None (occurrence: CO)
  Receive Date: 20230105
  Receipt Date: 20230105
  Transmission Date: 20230417
  Serious: Yes (Death)
  Sender: FDA-Public Use
  Company Number: CO-AKCEA THERAPEUTICS, INC.-2023IS001002

PATIENT
  Age: 68 Year
  Sex: Male
  Weight: 49.091 kg

DRUGS (8)
  1. TEGSEDI [Suspect]
     Active Substance: INOTERSEN SODIUM
     Indication: Product used for unknown indication
     Route: 058
     Dates: start: 20221018
  2. DEVICE [Suspect]
     Active Substance: DEVICE
  3. TEGSEDI [Suspect]
     Active Substance: INOTERSEN SODIUM
     Route: 058
     Dates: start: 202209
  4. GABAPENTIN [Concomitant]
     Active Substance: GABAPENTIN
     Route: 048
  5. ONDANSETRON [Concomitant]
     Active Substance: ONDANSETRON
     Route: 048
  6. HYOSCINE BROMIDE [Concomitant]
     Route: 048
  7. HALOPERIDOL [Concomitant]
     Active Substance: HALOPERIDOL
     Route: 048
  8. DOXYCYCLINE [Concomitant]
     Active Substance: DOXYCYCLINE
     Route: 048

REACTIONS (1)
  - Death [Fatal]

NARRATIVE: CASE EVENT DATE: 20221208
